FAERS Safety Report 9917551 (Version 2)
Quarter: 2014Q1

REPORT INFORMATION
  Report Type: Spontaneous
  Country: US (occurrence: US)
  Receive Date: 20140221
  Receipt Date: 20140317
  Transmission Date: 20141002
  Serious: Yes (Death, Hospitalization)
  Sender: FDA-Public Use
  Company Number: US-B.I. PHARMACEUTICALS,INC./RIDGEFIELD-2014-BI-07748BP

PATIENT
  Sex: Female

DRUGS (3)
  1. PRADAXA [Suspect]
     Indication: ATRIAL FIBRILLATION
     Route: 065
     Dates: start: 2011
  2. CALCIUM [Concomitant]
     Route: 065
  3. MATOPERAL [Concomitant]
     Route: 065

REACTIONS (3)
  - Pulmonary haemorrhage [Fatal]
  - Epistaxis [Unknown]
  - Rectal haemorrhage [Unknown]
